FAERS Safety Report 4933436-0 (Version None)
Quarter: 2006Q1

REPORT INFORMATION
  Report Type: 
  Country: None (occurrence: None)
  Receive Date: 20060306
  Receipt Date: 20060223
  Transmission Date: 20060701
  Serious: Yes (Other)
  Sender: FDA-Public Use
  Company Number: GB-GLAXOSMITHKLINE-B0413348A

PATIENT
  Age: 79 Year
  Sex: Female

DRUGS (2)
  1. AVANDIA [Suspect]
     Indication: DIABETES MELLITUS NON-INSULIN-DEPENDENT
     Dosage: 4MG PER DAY
     Route: 048
     Dates: start: 20050901
  2. METFORMIN [Concomitant]

REACTIONS (3)
  - COLOUR BLINDNESS [None]
  - CONDITION AGGRAVATED [None]
  - NIGHT BLINDNESS [None]
